FAERS Safety Report 4278124-1 (Version None)
Quarter: 2004Q1

REPORT INFORMATION
  Report Type: 
  Country: None (occurrence: None)
  Receive Date: 20040121
  Receipt Date: 20040105
  Transmission Date: 20041129
  Serious: Yes (Hospitalization)
  Sender: FDA-Public Use
  Company Number: A03200400017

PATIENT
  Sex: Male

DRUGS (6)
  1. PLAVIX [Suspect]
     Dosage: ORAL
     Route: 048
  2. PRINIVIL [Suspect]
     Indication: HYPERTENSION
     Dosage: ORAL
     Route: 048
  3. METOPROLOL TARTRATE [Suspect]
     Indication: HYPERTENSION
     Dosage: 50 MG BID ORAL
     Route: 048
  4. FUROSEMIDE [Suspect]
     Dosage: 40 MG QD ORAL
     Route: 048
  5. LOVASTATIN [Suspect]
  6. FELODIPINE [Suspect]
     Dosage: 10 MG QD ORAL
     Route: 048

REACTIONS (2)
  - BLOOD PRESSURE DECREASED [None]
  - FALL [None]
